FAERS Safety Report 17075495 (Version 2)
Quarter: 2019Q4

REPORT INFORMATION
  Report Type: Spontaneous
  Country: US (occurrence: US)
  Receive Date: 20191126
  Receipt Date: 20191220
  Transmission Date: 20200122
  Serious: No
  Sender: FDA-Public Use
  Company Number: US-PFIZER INC-2019508054

PATIENT
  Age: 62 Year
  Sex: Female

DRUGS (16)
  1. ASPIR LOW [Concomitant]
     Active Substance: ASPIRIN
     Dosage: 81 MG, UNK
  2. FASLODEX [Suspect]
     Active Substance: FULVESTRANT
     Dosage: UNK(250 MG/5ML SYRINGE)
  3. CARVEDILOL. [Concomitant]
     Active Substance: CARVEDILOL
     Dosage: 12.5 MG, UNK
  4. ASPIRIN [ACETYLSALICYLIC ACID] [Concomitant]
     Active Substance: ASPIRIN
     Dosage: UNK (LOW DOSE)
  5. FULVESTRANT. [Concomitant]
     Active Substance: FULVESTRANT
     Dosage: UNK(250 MG/5ML SYRINGE)
  6. CALCIUM [Concomitant]
     Active Substance: CALCIUM
     Dosage: UNK(500(1250) TABLET)
  7. IRON + VITAMIN C [Concomitant]
     Active Substance: ASCORBIC ACID\IRON
     Dosage: UNK
  8. ZYRTEC [Concomitant]
     Active Substance: CETIRIZINE HYDROCHLORIDE
     Dosage: 10 MG, UNK
  9. MONTELUKAST SODIUM. [Concomitant]
     Active Substance: MONTELUKAST SODIUM
     Dosage: 10 MG, UNK
  10. PEPCID AC [Concomitant]
     Active Substance: FAMOTIDINE
     Dosage: 10 MG, UNK
  11. QUINAPRIL. [Concomitant]
     Active Substance: QUINAPRIL
     Dosage: 20 MG, UNK
  12. VENTOLIN HFA [Concomitant]
     Active Substance: ALBUTEROL SULFATE
     Dosage: 90 UG, UNK
  13. GAS-X [Concomitant]
     Active Substance: DIMETHICONE
     Dosage: 125 MG, UNK
  14. IBRANCE [Suspect]
     Active Substance: PALBOCICLIB
     Indication: BREAST CANCER FEMALE
     Dosage: 125 MG, CYCLIC [DAILY FOR 21 OUT OF 28 DAY]
     Route: 048
     Dates: start: 20190601
  15. VENTOLIN [Concomitant]
     Active Substance: ALBUTEROL SULFATE
     Dosage: UNK
  16. VITAMIN D2 [Concomitant]
     Active Substance: ERGOCALCIFEROL
     Dosage: 1250 UG, UNK

REACTIONS (3)
  - Blood glucose increased [Unknown]
  - Neutrophil count decreased [Unknown]
  - Blood count abnormal [Unknown]

NARRATIVE: CASE EVENT DATE: 2019
